FAERS Safety Report 4902722-2 (Version None)
Quarter: 2006Q1

REPORT INFORMATION
  Report Type: 
  Country: None (occurrence: None)
  Receive Date: 20060207
  Receipt Date: 20060117
  Transmission Date: 20060701
  Serious: Yes (Death, Life-Threatening, Hospitalization)
  Sender: FDA-Public Use
  Company Number: CA-SANOFI-SYNTHELABO-F01200600112

PATIENT
  Sex: Female

DRUGS (5)
  1. OXALIPLATIN [Suspect]
     Indication: COLON CANCER
     Route: 042
     Dates: start: 20051129, end: 20051129
  2. CAPECITABINE [Suspect]
     Dosage: 1650 MG TWICE DAILY FOR 14 DAYS, Q3W
     Route: 048
     Dates: start: 20051129, end: 20051211
  3. BEVACIZUMAB [Suspect]
     Route: 042
     Dates: start: 20051129, end: 20051129
  4. ZOFRAN [Concomitant]
     Dates: start: 20051129
  5. PROCHLORPERAZINE [Concomitant]
     Dates: start: 20051129

REACTIONS (9)
  - COLITIS [None]
  - DEATH [None]
  - DEHYDRATION [None]
  - DYSPNOEA [None]
  - ISCHAEMIC STROKE [None]
  - OESOPHAGITIS [None]
  - PALPITATIONS [None]
  - SEPTIC SHOCK [None]
  - THROMBOCYTOPENIA [None]
